FAERS Safety Report 4687917-8 (Version None)
Quarter: 2005Q2

REPORT INFORMATION
  Report Type: 
  Country: None (occurrence: None)
  Receive Date: 20050610
  Receipt Date: 20050531
  Transmission Date: 20051028
  Serious: Yes (Other)
  Sender: FDA-Public Use
  Company Number: CA-GLAXOSMITHKLINE-A0561911A

PATIENT
  Age: 23 Year
  Sex: Female

DRUGS (12)
  1. PAXIL [Suspect]
     Indication: DRUG USE FOR UNKNOWN INDICATION
     Dosage: 60MG PER DAY
  2. ASPIRIN [Suspect]
     Indication: DRUG USE FOR UNKNOWN INDICATION
  3. QUETIAPINE [Suspect]
     Indication: DRUG USE FOR UNKNOWN INDICATION
     Dosage: 700MG PER DAY
  4. AMITRIPTYLINE [Concomitant]
     Dosage: 25MG PER DAY
  5. AMOXICILLIN [Concomitant]
  6. CITALOPRAM [Concomitant]
     Dosage: 20MG TWICE PER DAY
  7. CLONAZEPAM [Concomitant]
  8. NAPROXEN [Concomitant]
  9. OMEPRAZOLE [Concomitant]
  10. OXAZEPAM [Concomitant]
     Dosage: 30MG PER DAY
  11. STARNOC [Concomitant]
     Dosage: 7.5MG PER DAY
  12. THYROID TAB [Concomitant]

REACTIONS (5)
  - ASTERIXIS [None]
  - GAIT DISTURBANCE [None]
  - OVERDOSE [None]
  - RESPIRATORY ALKALOSIS [None]
  - TREMOR [None]
